FAERS Safety Report 16591049 (Version 1)
Quarter: 2019Q3

REPORT INFORMATION
  Report Type: Spontaneous
  Country: US (occurrence: US)
  Receive Date: 20190718
  Receipt Date: 20190718
  Transmission Date: 20191004
  Serious: No
  Sender: FDA-Public Use
  Company Number: US-PFIZER INC-2019304896

PATIENT
  Age: 50 Year
  Sex: Female

DRUGS (4)
  1. INSULIN [Suspect]
     Active Substance: INSULIN NOS
     Dosage: UNK
  2. GEMFIBROZIL. [Suspect]
     Active Substance: GEMFIBROZIL
     Dosage: UNK
  3. LEVOTHYROXINE SODIUM. [Suspect]
     Active Substance: LEVOTHYROXINE SODIUM
     Dosage: UNK
  4. BYETTA [Suspect]
     Active Substance: EXENATIDE
     Dosage: UNK

REACTIONS (1)
  - Drug hypersensitivity [Unknown]
